FAERS Safety Report 5680028-4 (Version None)
Quarter: 2008Q1

REPORT INFORMATION
  Report Type: 
  Country: None (occurrence: None)
  Receive Date: 20080324
  Receipt Date: 20080312
  Transmission Date: 20080703
  Serious: Yes (Death, Life-Threatening, Hospitalization, Other)
  Sender: FDA-Public Use
  Company Number: US022988

PATIENT
  Age: 63 Year
  Sex: Male

DRUGS (33)
  1. TRISENOX [Suspect]
     Indication: ACUTE PROMYELOCYTIC LEUKAEMIA
     Dosage: K9.75 MG QD; INTRAVENOUS
     Route: 042
     Dates: start: 20070315, end: 20070317
  2. TRISENOX [Suspect]
     Indication: ACUTE PROMYELOCYTIC LEUKAEMIA
     Dosage: 9.75 MG DAYS 1 AND 2 OF 5 DAY CYCLE QD; INTRAVENOUS
     Route: 042
     Dates: start: 20070402, end: 20070506
  3. ARBEKACIN SULFATE [Suspect]
     Dosage: 37.5 MG QD; INTRAVENOUS
     Route: 042
     Dates: start: 20070322, end: 20070420
  4. MEROPENEM [Suspect]
     Dosage: INTRAVENOUS
     Route: 042
  5. MEXILETINE HYDROCHLORIDE [Concomitant]
  6. DALTEPARIN SODIUM [Concomitant]
  7. HYDROCORTISONE SODIUM SUCCINATE [Concomitant]
  8. RANITIDINE HYDROCHLORIDE [Concomitant]
  9. ALLOPURINOL [Concomitant]
  10. VALSARTAN [Concomitant]
  11. CILOSTAZOL [Concomitant]
  12. FUROSEMIDE [Concomitant]
  13. MITIGLINIDE CALCIUM HYDRATE [Concomitant]
  14. ISORBIDE [Concomitant]
  15. ETHYL ICOSAPENTATE [Concomitant]
  16. BERAPROST SODIUM [Concomitant]
  17. TEPRENONE [Concomitant]
  18. MAGNESIUM OXIDE [Concomitant]
  19. BENFOTIAMINE/B6/B12 [Concomitant]
  20. NITROGLYCERN [Concomitant]
  21. ZOLPIDEM TARTRATE [Concomitant]
  22. TRICHLORMETHIAZIDE [Concomitant]
  23. ATORVASTATIN CALCIUM [Concomitant]
  24. CEFOZOPRAN HYDROCHLORIDE [Concomitant]
  25. CEFEPIME DIHYDROCHLORIDE [Concomitant]
  26. MICAFUNGIN SODIUM [Concomitant]
  27. OMEPRAZOLE SODIUM [Concomitant]
  28. CARPERITIDE (GENETICAL RECOMBINATION) [Concomitant]
  29. HUMAN ANTITHROMBIN 3 CONCENTRATED [Concomitant]
  30. ACYCLOVIR [Concomitant]
  31. TRANEXAMIC ACID [Concomitant]
  32. BIAPENEM [Concomitant]
  33. DEXAMETHASONE SODIUM PHOSPHATE [Concomitant]

REACTIONS (28)
  - ACTIVATED PARTIAL THROMBOPLASTIN TIME PROLONGED [None]
  - ACUTE PROMYELOCYTIC LEUKAEMIA [None]
  - ALANINE AMINOTRANSFERASE INCREASED [None]
  - ASPARTATE AMINOTRANSFERASE INCREASED [None]
  - BLOOD ALBUMIN DECREASED [None]
  - BLOOD ALKALINE PHOSPHATASE INCREASED [None]
  - BLOOD BILIRUBIN INCREASED [None]
  - BLOOD CALCIUM DECREASED [None]
  - BLOOD LACTATE DEHYDROGENASE INCREASED [None]
  - BLOOD POTASSIUM INCREASED [None]
  - BLOOD SODIUM DECREASED [None]
  - BLOOD UREA INCREASED [None]
  - BLOOD URIC ACID INCREASED [None]
  - CONDITION AGGRAVATED [None]
  - ELECTROCARDIOGRAM QT PROLONGED [None]
  - FEBRILE NEUTROPENIA [None]
  - FIBRIN DEGRADATION PRODUCTS INCREASED [None]
  - GAMMA-GLUTAMYLTRANSFERASE INCREASED [None]
  - HEPATIC FUNCTION ABNORMAL [None]
  - HYPERGLYCAEMIA [None]
  - LEUKOPENIA [None]
  - MALAISE [None]
  - PROTEIN TOTAL DECREASED [None]
  - PROTHROMBIN LEVEL DECREASED [None]
  - PULMONARY ALVEOLAR HAEMORRHAGE [None]
  - RENAL IMPAIRMENT [None]
  - RESPIRATORY DISORDER [None]
  - THROMBOCYTOPENIA [None]
